FAERS Safety Report 4354537-4 (Version None)
Quarter: 2004Q2

REPORT INFORMATION
  Report Type: 
  Country: None (occurrence: None)
  Receive Date: 20040506
  Receipt Date: 20040506
  Transmission Date: 20050107
  Serious: Yes (Hospitalization)
  Sender: FDA-Public Use
  Company Number: None

PATIENT
  Sex: Male
  Weight: 70.4 kg

DRUGS (24)
  1. PREDNISONE [Suspect]
     Indication: LYMPHOMA
     Dosage: 40 MG QD (DAYS 1-14) , ORAL
     Route: 048
     Dates: start: 20040413, end: 20040426
  2. ADRIAMYCIN PFS [Suspect]
     Indication: LYMPHOMA
     Dosage: 49 MG (D1 AND D8) IV
     Route: 042
     Dates: start: 20040413
  3. ADRIAMYCIN PFS [Suspect]
     Indication: LYMPHOMA
     Dosage: 49 MG (D1 AND D8) IV
     Route: 042
     Dates: start: 20040420
  4. CYTOXAN , MEAD JOHNSON, 2 GRAM VIAL [Suspect]
     Indication: LYMPHOMA
     Dosage: 715 MG
     Dates: start: 20040413
  5. CYTOXAN , MEAD JOHNSON, 2 GRAM VIAL [Suspect]
     Indication: LYMPHOMA
     Dosage: 715 MG
     Dates: start: 20040420
  6. CYTOXAN , MEAD JOHNSON, 2 GRAM VIAL [Suspect]
  7. ETOPOSIDE [Suspect]
     Indication: LYMPHOMA
     Dosage: 234 MG
     Dates: start: 20040413
  8. ETOPOSIDE [Suspect]
     Indication: LYMPHOMA
     Dosage: 234 MG
     Dates: start: 20040420
  9. BUPROPION HCL [Concomitant]
  10. SERTRALINE [Concomitant]
  11. FEXOFENADINE HCL [Concomitant]
  12. FLUTICASONE PROPIONATE [Concomitant]
  13. INSULIN GLARGINE [Concomitant]
  14. DOCUSATE SODIUM [Concomitant]
  15. GLIPIZIDE [Concomitant]
  16. METFORMIN HCL [Concomitant]
  17. RABEPRAZOLE SODIUM [Concomitant]
  18. LISINOPRIL [Concomitant]
  19. INSULIN LISPRIL SLIDING SCALE [Concomitant]
  20. SALMON OIL [Concomitant]
  21. SIMVASTATIN [Concomitant]
  22. IBUPROFEN [Concomitant]
  23. BACTRIM DS [Concomitant]
  24. NEULASTA [Concomitant]

REACTIONS (2)
  - CHEST PAIN [None]
  - HEART RATE INCREASED [None]
